FAERS Safety Report 8273955-5 (Version None)
Quarter: 2012Q2

REPORT INFORMATION
  Report Type: 
  Country: None (occurrence: None)
  Receive Date: 20120411
  Receipt Date: 20120405
  Transmission Date: 20120825
  Serious: Yes (Hospitalization)
  Sender: FDA-Public Use
  Company Number: NL-GENZYME-CLOF-1002080

PATIENT
  Sex: Male
  Weight: 73 kg

DRUGS (13)
  1. CIPROFLOXACIN HCL [Concomitant]
     Indication: PRODUCT USED FOR UNKNOWN INDICATION
     Dosage: 500 2 DD 1
     Route: 048
     Dates: start: 20120213
  2. METHOTREXATE [Suspect]
     Indication: ACUTE LYMPHOCYTIC LEUKAEMIA
     Dosage: 15 MG ON DAY 1, 8, AND 15
     Route: 037
     Dates: start: 20120221, end: 20120228
  3. PEG-ASPARAGINASE [Suspect]
     Indication: ACUTE LYMPHOCYTIC LEUKAEMIA
     Dosage: 1850 IU, ON DAY 8 AND 21
     Route: 042
     Dates: start: 20120221, end: 20120305
  4. VINCRISTINE [Suspect]
     Indication: ACUTE LYMPHOCYTIC LEUKAEMIA
     Dosage: 2 MG, ON DAY 8, 15, 22, 24
     Route: 042
     Dates: start: 20120221, end: 20120306
  5. PREDNISOLONE [Suspect]
     Indication: ACUTE LYMPHOCYTIC LEUKAEMIA
     Dosage: 25 MG, QD DAY 1 TO 28
     Route: 037
     Dates: start: 20120214, end: 20120228
  6. ALLOPURINOL [Concomitant]
     Indication: PRODUCT USED FOR UNKNOWN INDICATION
     Dosage: 500 MG 2 DD 1
     Route: 048
     Dates: start: 20120213
  7. FAMOTIDINE [Concomitant]
     Indication: PRODUCT USED FOR UNKNOWN INDICATION
     Dosage: 40 MG 1 DD 1
     Route: 048
     Dates: start: 20120213
  8. COTRIM [Concomitant]
     Indication: PRODUCT USED FOR UNKNOWN INDICATION
     Dosage: 1 DD 1
     Route: 048
     Dates: start: 20120213
  9. PREDNISONE [Concomitant]
     Indication: PRODUCT USED FOR UNKNOWN INDICATION
     Dosage: 40 MG 2 DD
     Route: 048
     Dates: start: 20120213
  10. POSACONAZOLE [Concomitant]
     Indication: PRODUCT USED FOR UNKNOWN INDICATION
     Dosage: 5 ML 3 DD 1
     Route: 065
     Dates: start: 20120213
  11. EVOLTRA [Suspect]
     Indication: ACUTE LYMPHOCYTIC LEUKAEMIA
     Dosage: 60 MG, QD
     Route: 042
     Dates: start: 20120214, end: 20120218
  12. PREDNISOLONE [Suspect]
     Dosage: 40 MG X 2
     Route: 048
     Dates: start: 20120221, end: 20120310
  13. DAUNORUBICIN HCL [Suspect]
     Indication: ACUTE LYMPHOCYTIC LEUKAEMIA
     Dosage: 76 MG DAY 15, 22
     Route: 042
     Dates: start: 20120228, end: 20120306

REACTIONS (1)
  - CONSTIPATION [None]
